FAERS Safety Report 24120690 (Version 2)
Quarter: 2024Q3

REPORT INFORMATION
  Report Type: Spontaneous
  Country: US (occurrence: US)
  Receive Date: 20240722
  Receipt Date: 20240730
  Transmission Date: 20241017
  Serious: No
  Sender: TEVA
  Company Number: US-TEVA-VS-3220308

PATIENT
  Age: 37 Year
  Sex: Male

DRUGS (2)
  1. UZEDY [Suspect]
     Active Substance: RISPERIDONE
     Indication: Product used for unknown indication
     Dosage: 50/0.14 MG/ML
     Route: 065
     Dates: start: 20240504
  2. HYDROXYZINE [Concomitant]
     Active Substance: HYDROXYZINE HYDROCHLORIDE

REACTIONS (3)
  - Anxiety [Not Recovered/Not Resolved]
  - Electric shock sensation [Unknown]
  - Malaise [Unknown]

NARRATIVE: CASE EVENT DATE: 20240101
